FAERS Safety Report 5031918-7 (Version None)
Quarter: 2006Q2

REPORT INFORMATION
  Report Type: 
  Country: None (occurrence: None)
  Receive Date: 20060619
  Receipt Date: 20060606
  Transmission Date: 20061013
  Serious: Yes (Life-Threatening, Hospitalization)
  Sender: FDA-Public Use
  Company Number: GXKR2006GR03202

PATIENT
  Age: 67 Year
  Sex: Female

DRUGS (5)
  1. ZOLPIDEM (NGX) (ZOLPIDEM) [Suspect]
     Indication: SLEEP DISORDER
  2. AMIODARONE (NGX) (AMIODARONE) LIQUID [Suspect]
     Dosage: SEE IMAGE
  3. CAPTOPRIL [Concomitant]
  4. FUORSEMIDE (FUROSEMIDE) [Concomitant]
  5. WARFARIN SODIUM [Concomitant]

REACTIONS (9)
  - ARRHYTHMIA [None]
  - BUNDLE BRANCH BLOCK LEFT [None]
  - DRUG INTERACTION [None]
  - EJECTION FRACTION DECREASED [None]
  - ELECTROCARDIOGRAM QT PROLONGED [None]
  - PALPITATIONS [None]
  - TORSADE DE POINTES [None]
  - VENTRICULAR EXTRASYSTOLES [None]
  - VENTRICULAR FIBRILLATION [None]
